FAERS Safety Report 14495386 (Version 1)
Quarter: 2018Q1

REPORT INFORMATION
  Report Type: Spontaneous
  Country: US (occurrence: US)
  Receive Date: 20180206
  Receipt Date: 20180206
  Transmission Date: 20180509
  Serious: No
  Sender: FDA-Public Use
  Company Number: US-SMITH AND NEPHEW, INC-2017SMT00258

PATIENT
  Age: 74 Year
  Sex: Male
  Weight: 117.91 kg

DRUGS (4)
  1. REGRANEX [Suspect]
     Active Substance: BECAPLERMIN
     Dosage: UNK
     Route: 061
     Dates: start: 201704
  2. UNSPECIFIED DIABETES MEDICATIONS [Concomitant]
  3. REGRANEX [Suspect]
     Active Substance: BECAPLERMIN
     Indication: WOUND
     Dosage: UNK
     Route: 061
     Dates: start: 2017, end: 201704
  4. UNSPECIFIED INSULIN [Concomitant]
     Active Substance: INSULIN NOS

REACTIONS (1)
  - Wound infection [Recovered/Resolved]

NARRATIVE: CASE EVENT DATE: 201704
